FAERS Safety Report 15514873 (Version 1)
Quarter: 2018Q4

REPORT INFORMATION
  Report Type: Spontaneous
  Country: FR (occurrence: FR)
  Receive Date: 20181017
  Receipt Date: 20181017
  Transmission Date: 20190205
  Serious: Yes (Other)
  Sender: FDA-Public Use
  Company Number: FR-ROCHE-2198224

PATIENT
  Age: 28 Year
  Sex: Male

DRUGS (2)
  1. COCAINE [Suspect]
     Active Substance: COCAINE
     Indication: DRUG DEPENDENCE
     Dosage: INCONNUE
     Route: 045
     Dates: start: 20180703, end: 20180703
  2. VALIUM [Suspect]
     Active Substance: DIAZEPAM
     Indication: ECONOMIC PROBLEM
     Route: 048
     Dates: start: 20180703, end: 20180703

REACTIONS (1)
  - Coma [Recovered/Resolved]

NARRATIVE: CASE EVENT DATE: 20180703
